FAERS Safety Report 7019273-4 (Version None)
Quarter: 2010Q3

REPORT INFORMATION
  Report Type: 
  Country: None (occurrence: None)
  Receive Date: 20100928
  Receipt Date: 20100912
  Transmission Date: 20110219
  Serious: Yes (Other)
  Sender: FDA-Public Use
  Company Number: HR-GENENTECH-307084

PATIENT
  Age: 11 Year
  Sex: Male

DRUGS (8)
  1. RITUXIMAB [Suspect]
     Indication: B-CELL LYMPHOMA
     Dosage: 375 MG/M2, UNK
     Route: 042
  2. RITUXIMAB [Suspect]
     Dosage: 1 MG/KG, UNK
     Route: 042
  3. CYCLOPHOSPHAMIDE [Suspect]
     Indication: B-CELL LYMPHOMA
     Dosage: UNK UNK, Q28D
     Route: 065
  4. DOXORUBICIN HCL [Suspect]
     Indication: B-CELL LYMPHOMA
     Dosage: UNK
     Route: 065
  5. VINCRISTINE [Suspect]
     Indication: B-CELL LYMPHOMA
     Dosage: UNK
     Route: 065
  6. PREDNISONE [Suspect]
     Indication: B-CELL LYMPHOMA
     Dosage: UNK
     Route: 065
  7. PARACETAMOL [Concomitant]
     Indication: PREMEDICATION
     Dosage: PRIOR TO RITUXIMAB
     Route: 048
  8. DIPHENHYDRAMINE [Concomitant]
     Indication: PREMEDICATION
     Dosage: PRIOR TO RITUXIMAB, SLOW INFUSION
     Route: 042

REACTIONS (4)
  - BONE MARROW FAILURE [None]
  - FUNGAL SEPSIS [None]
  - GASTROINTESTINAL HYPOMOTILITY [None]
  - SEPSIS [None]
